FAERS Safety Report 14751103 (Version 5)
Quarter: 2019Q2

REPORT INFORMATION
  Report Type: Spontaneous
  Country: US (occurrence: US)
  Receive Date: 20180412
  Receipt Date: 20190503
  Transmission Date: 20190711
  Serious: Yes (Other)
  Sender: FDA-Public Use
  Company Number: US-ASTRAZENECA-2018SE43725

PATIENT
  Age: 27798 Day
  Sex: Male
  Weight: 79.4 kg

DRUGS (53)
  1. NEXIUM 24HR [Suspect]
     Active Substance: ESOMEPRAZOLE MAGNESIUM
     Indication: GASTROOESOPHAGEAL REFLUX DISEASE
     Route: 048
     Dates: start: 2015, end: 2016
  2. NEXIUM 24HR [Suspect]
     Active Substance: ESOMEPRAZOLE MAGNESIUM
     Indication: GASTROOESOPHAGEAL REFLUX DISEASE
     Route: 048
     Dates: start: 20150616
  3. PRILOSEC OTC [Suspect]
     Active Substance: OMEPRAZOLE MAGNESIUM
     Indication: GASTROOESOPHAGEAL REFLUX DISEASE
     Route: 048
     Dates: start: 20160103
  4. BENADRYL [Concomitant]
     Active Substance: DIPHENHYDRAMINE HYDROCHLORIDE
     Indication: SINUS DISORDER
     Dosage: AS NEEDED
     Dates: start: 2012
  5. CLARITIN-D NOS [Concomitant]
     Active Substance: LORATADINE\PSEUDOEPHEDRINE SULFATE
     Indication: SINUS DISORDER
     Dosage: AS NEEDED
  6. LISINOPRIL-HYDROCHLOROTHIAZIDE [Concomitant]
     Active Substance: HYDROCHLOROTHIAZIDE\LISINOPRIL
  7. PRILOSEC [Suspect]
     Active Substance: OMEPRAZOLE MAGNESIUM
     Indication: GASTROOESOPHAGEAL REFLUX DISEASE
     Route: 048
     Dates: start: 20150126
  8. PANTOPRAZOLE [Suspect]
     Active Substance: PANTOPRAZOLE
     Indication: GASTROOESOPHAGEAL REFLUX DISEASE
     Route: 065
     Dates: start: 2012, end: 2013
  9. PANTOPRAZOLE [Suspect]
     Active Substance: PANTOPRAZOLE
     Indication: GASTROOESOPHAGEAL REFLUX DISEASE
     Route: 065
     Dates: start: 2012, end: 2017
  10. AMOXICILLIN. [Concomitant]
     Active Substance: AMOXICILLIN
     Indication: SINUSITIS
     Dates: start: 2013, end: 2017
  11. LISINOPRIL. [Concomitant]
     Active Substance: LISINOPRIL
     Indication: HYPERTENSION
     Dates: start: 2008, end: 2013
  12. CIPROFLOXACIN. [Concomitant]
     Active Substance: CIPROFLOXACIN
     Indication: SEPSIS
     Dates: start: 2012, end: 2014
  13. BACTRIM [Concomitant]
     Active Substance: SULFAMETHOXAZOLE\TRIMETHOPRIM
     Indication: EAR INFECTION
     Dates: start: 2014
  14. METFORMIN HYDROCHLORIDE. [Concomitant]
     Active Substance: METFORMIN HYDROCHLORIDE
     Indication: DIABETES MELLITUS
  15. STARLIX [Concomitant]
     Active Substance: NATEGLINIDE
  16. NIACIN. [Concomitant]
     Active Substance: NIACIN
  17. PRILOSEC OTC [Suspect]
     Active Substance: OMEPRAZOLE MAGNESIUM
     Indication: GASTROOESOPHAGEAL REFLUX DISEASE
     Route: 048
     Dates: start: 2013, end: 2017
  18. KEFLEX [Concomitant]
     Active Substance: CEPHALEXIN
     Indication: BLADDER DISORDER
     Dosage: 2012,2013,2014
     Dates: start: 2012, end: 2014
  19. FLONASE [Concomitant]
     Active Substance: FLUTICASONE PROPIONATE
     Indication: SINUS DISORDER
     Dosage: AS NEEDED
  20. BECONASE AQ [Concomitant]
     Active Substance: BECLOMETHASONE DIPROPIONATE MONOHYDRATE
     Indication: PAIN
     Dosage: JUST ONE BOTTLE
     Dates: start: 2015, end: 2015
  21. INSULIN [Concomitant]
     Active Substance: INSULIN NOS
     Indication: DIABETES MELLITUS
     Dates: start: 2015
  22. LOSARTAN. [Concomitant]
     Active Substance: LOSARTAN
     Indication: THERAPY CHANGE
     Dates: start: 2011, end: 2016
  23. TUMS [Concomitant]
     Active Substance: CALCIUM CARBONATE
     Dosage: 2-3 TABS/DAY
     Dates: start: 2012
  24. FAMOTIDINE. [Concomitant]
     Active Substance: FAMOTIDINE
     Route: 048
  25. GLIPIZIDE. [Concomitant]
     Active Substance: GLIPIZIDE
  26. NEXIUM [Suspect]
     Active Substance: ESOMEPRAZOLE MAGNESIUM
     Indication: GASTROOESOPHAGEAL REFLUX DISEASE
     Route: 048
     Dates: start: 2009
  27. PRILOSEC OTC [Suspect]
     Active Substance: OMEPRAZOLE MAGNESIUM
     Indication: GASTROOESOPHAGEAL REFLUX DISEASE
     Route: 048
     Dates: start: 20170120
  28. ZITHROMAX [Concomitant]
     Active Substance: AZITHROMYCIN DIHYDRATE
     Indication: CYSTITIS
     Dates: start: 2009, end: 2011
  29. ASPIRIN. [Concomitant]
     Active Substance: ASPIRIN
     Indication: ANTICOAGULANT THERAPY
  30. ASPIRIN. [Concomitant]
     Active Substance: ASPIRIN
     Indication: ANTICOAGULANT THERAPY
     Dates: start: 2005
  31. METFORMIN HYDROCHLORIDE. [Concomitant]
     Active Substance: METFORMIN HYDROCHLORIDE
     Indication: DIABETES MELLITUS
     Dosage: METFORMIN
     Dates: start: 2006
  32. GLIPIZIDE. [Concomitant]
     Active Substance: GLIPIZIDE
     Indication: DIABETES MELLITUS
     Dates: start: 2003, end: 2011
  33. MIRABEGRON [Concomitant]
     Active Substance: MIRABEGRON
     Dates: start: 2016
  34. PRILOSEC OTC [Suspect]
     Active Substance: OMEPRAZOLE MAGNESIUM
     Indication: GASTROOESOPHAGEAL REFLUX DISEASE
     Route: 048
     Dates: start: 20151110
  35. NASACORT [Concomitant]
     Active Substance: TRIAMCINOLONE ACETONIDE
     Indication: SINUS DISORDER
     Dates: start: 2000
  36. METFORMIN HYDROCHLORIDE. [Concomitant]
     Active Substance: METFORMIN HYDROCHLORIDE
     Indication: DIABETES MELLITUS
     Dosage: METFORMIN
     Dates: start: 2006
  37. TAMSULOSIN [Concomitant]
     Active Substance: TAMSULOSIN
     Dates: start: 2017
  38. CLARITINE [Concomitant]
     Active Substance: LORATADINE
  39. NEXIUM 24HR [Suspect]
     Active Substance: ESOMEPRAZOLE MAGNESIUM
     Indication: GASTROOESOPHAGEAL REFLUX DISEASE
     Route: 048
     Dates: start: 20161004
  40. SIMVASTATIN. [Concomitant]
     Active Substance: SIMVASTATIN
     Indication: LDL/HDL RATIO INCREASED
     Dosage: 5.0MG UNKNOWN
     Dates: start: 2013
  41. ACTOS [Concomitant]
     Active Substance: PIOGLITAZONE HYDROCHLORIDE
     Indication: TYPE 2 DIABETES MELLITUS
     Dates: start: 2008, end: 2012
  42. VANCOMYCIN [Concomitant]
     Active Substance: VANCOMYCIN
     Indication: SEPSIS
     Dates: start: 2016
  43. VITAMINS NOS [Concomitant]
     Active Substance: VITAMINS
     Indication: DIABETES MELLITUS
     Dates: start: 2000
  44. VITAMIN C [Concomitant]
     Active Substance: ASCORBIC ACID
     Indication: ANTIVIRAL PROPHYLAXIS
     Dosage: JUST ONE BOTTLE
     Dates: start: 2015
  45. MAGNESIUM OXIDE. [Concomitant]
     Active Substance: MAGNESIUM OXIDE
     Indication: ROUTINE HEALTH MAINTENANCE
     Dates: start: 2000
  46. ANDROGEL [Concomitant]
     Active Substance: TESTOSTERONE
     Dates: start: 2001
  47. RELAFEN [Concomitant]
     Active Substance: NABUMETONE
  48. PRILOSEC [Suspect]
     Active Substance: OMEPRAZOLE MAGNESIUM
     Indication: GASTROOESOPHAGEAL REFLUX DISEASE
     Route: 048
     Dates: start: 2012, end: 2014
  49. PRILOSEC OTC [Suspect]
     Active Substance: OMEPRAZOLE MAGNESIUM
     Indication: GASTROOESOPHAGEAL REFLUX DISEASE
     Route: 048
     Dates: start: 2012
  50. TOBRAMYCIN. [Concomitant]
     Active Substance: TOBRAMYCIN
     Indication: EYE INFECTION
     Dates: start: 2009, end: 2015
  51. TUMS [Concomitant]
     Active Substance: CALCIUM CARBONATE
     Dosage: 2-3 TABS/DAY
     Dates: start: 2018
  52. BECONASE AQ [Concomitant]
     Active Substance: BECLOMETHASONE DIPROPIONATE MONOHYDRATE
     Indication: NEURALGIA
     Dosage: JUST ONE BOTTLE
     Dates: start: 2015, end: 2015
  53. TRAMADOL. [Concomitant]
     Active Substance: TRAMADOL
     Dates: start: 2017

REACTIONS (3)
  - Chronic kidney disease [Not Recovered/Not Resolved]
  - Renal failure [Unknown]
  - Hyperparathyroidism secondary [Unknown]

NARRATIVE: CASE EVENT DATE: 20171114
